FAERS Safety Report 22021726 (Version 1)
Quarter: 2023Q1

REPORT INFORMATION
  Report Type: Spontaneous
  Country: US (occurrence: None)
  Receive Date: 20230219
  Receipt Date: 20230219
  Transmission Date: 20230417
  Serious: Yes (Disabling, Other)
  Sender: FDA-Public Use
  Company Number: None

PATIENT
  Age: 69 Year
  Sex: Male
  Weight: 65.7 kg

DRUGS (5)
  1. CIALIS [Suspect]
     Active Substance: TADALAFIL
     Indication: Benign prostatic hyperplasia
     Dosage: OTHER QUANTITY : 1 TABLET(S);?FREQUENCY : DAILY;?
     Route: 048
     Dates: start: 20230203, end: 20230206
  2. CIALIS [Suspect]
     Active Substance: TADALAFIL
     Indication: Benign prostatic hyperplasia
  3. ACETAMINOPHEN\HYDROCODONE [Concomitant]
     Active Substance: ACETAMINOPHEN\HYDROCODONE
  4. VITAMINS [Concomitant]
     Active Substance: VITAMINS
  5. COENZYME Q10 [Concomitant]
     Active Substance: DIETARY SUPPLEMENT\UBIDECARENONE

REACTIONS (15)
  - Pruritus [None]
  - Pruritus [None]
  - Scab [None]
  - Ocular hyperaemia [None]
  - Hypopnoea [None]
  - Asthenia [None]
  - Fatigue [None]
  - Syncope [None]
  - Tinnitus [None]
  - Hyperacusis [None]
  - Dehydration [None]
  - Headache [None]
  - Eye swelling [None]
  - Eye pain [None]
  - Dyspnoea [None]

NARRATIVE: CASE EVENT DATE: 20230204
